FAERS Safety Report 15670234 (Version 10)
Quarter: 2022Q3

REPORT INFORMATION
  Report Type: Spontaneous
  Country: US (occurrence: US)
  Receive Date: 20181129
  Receipt Date: 20220911
  Transmission Date: 20221026
  Serious: No
  Sender: FDA-Public Use
  Company Number: US-SA-2018SA323769

PATIENT
  Age: 28 Year
  Sex: Male
  Weight: 87.075 kg

DRUGS (3)
  1. FABRAZYME [Suspect]
     Active Substance: AGALSIDASE BETA
     Indication: Fabry^s disease
     Dosage: 15 MG, QOW
     Route: 041
     Dates: start: 20160329
  2. FABRAZYME [Suspect]
     Active Substance: AGALSIDASE BETA
     Dosage: 0.97 MG/KG
     Route: 041
     Dates: start: 20181115
  3. FABRAZYME [Suspect]
     Active Substance: AGALSIDASE BETA
     Dosage: 70 MG, QOW
     Route: 041

REACTIONS (9)
  - Weight increased [Unknown]
  - Weight decreased [Unknown]
  - Fall [Unknown]
  - Pain [Unknown]
  - Malaise [Unknown]
  - Vomiting [Unknown]
  - Nausea [Recovered/Resolved]
  - Pyrexia [Recovered/Resolved]
  - Inappropriate schedule of product administration [Unknown]

NARRATIVE: CASE EVENT DATE: 20181101
